FAERS Safety Report 6192723-1 (Version None)
Quarter: 2009Q2

REPORT INFORMATION
  Report Type: 
  Country: None (occurrence: None)
  Receive Date: 20090518
  Receipt Date: 20070605
  Transmission Date: 20091009
  Serious: Yes (Hospitalization, Other)
  Sender: FDA-Public Use
  Company Number: US-ASTRAZENECA-2006UW24841

PATIENT
  Age: 12064 Day
  Sex: Male
  Weight: 60.8 kg

DRUGS (17)
  1. SEROQUEL [Suspect]
     Indication: BIPOLAR DISORDER
     Route: 048
     Dates: start: 20021028, end: 20031101
  2. SEROQUEL [Suspect]
     Indication: DEPRESSION
     Route: 048
     Dates: start: 20021028, end: 20031101
  3. SEROQUEL [Suspect]
     Route: 048
     Dates: start: 20021028, end: 20031101
  4. FOSAMAX [Concomitant]
     Route: 048
  5. COMBIVENT [Concomitant]
     Route: 065
  6. AMARYL [Concomitant]
     Dosage: 2MG-4MG
     Route: 065
  7. METHADONE HCL [Concomitant]
     Dosage: 2MG-20MG
     Route: 065
  8. PRILOSEC [Concomitant]
     Dosage: 20MG-40MG
     Route: 065
  9. ACTONEL [Concomitant]
     Route: 065
  10. ZOLOFT [Concomitant]
     Dosage: 50MG-200MG
     Route: 065
  11. LANTUS [Concomitant]
     Route: 065
  12. PANCREATIC ENZYMES [Concomitant]
     Route: 065
  13. NEURONTIN [Concomitant]
     Route: 065
  14. VISTARIL [Concomitant]
     Route: 065
     Dates: start: 20021024
  15. ADVAIR HFA [Concomitant]
     Route: 065
     Dates: start: 20020103
  16. ZYPREXA [Concomitant]
     Dosage: 2.5MG-10MG
     Route: 065
  17. ANDROGEL [Concomitant]
     Route: 065
     Dates: start: 20020828

REACTIONS (19)
  - ABDOMINAL DISTENSION [None]
  - ALCOHOL POISONING [None]
  - BACK PAIN [None]
  - CHEST PAIN [None]
  - CONFUSIONAL STATE [None]
  - COUGH [None]
  - DIABETES MELLITUS [None]
  - DRUG ABUSE [None]
  - DYSPHAGIA [None]
  - EYE PAIN [None]
  - GENERALISED OEDEMA [None]
  - HEADACHE [None]
  - INTERVERTEBRAL DISC DEGENERATION [None]
  - NASAL CONGESTION [None]
  - OESOPHAGEAL STENOSIS [None]
  - PAIN [None]
  - PANCREATITIS [None]
  - RIB FRACTURE [None]
  - SCAPULA FRACTURE [None]
